FAERS Safety Report 25095848 (Version 1)
Quarter: 2025Q1

REPORT INFORMATION
  Report Type: Report from Study
  Country: EG (occurrence: EG)
  Receive Date: 20250319
  Receipt Date: 20250319
  Transmission Date: 20250409
  Serious: Yes (Life-Threatening, Hospitalization)
  Sender: NOVARTIS
  Company Number: EG-002147023-NVSC2025EG042020

PATIENT
  Age: 53 Year
  Sex: Female
  Weight: 117 kg

DRUGS (6)
  1. ENTRESTO [Suspect]
     Active Substance: SACUBITRIL\VALSARTAN
     Indication: Cardiac failure
     Dosage: 200 MG, BID (1 TABLET OF 200 MG TWICE DAILY)
     Route: 048
  2. ENTRESTO [Suspect]
     Active Substance: SACUBITRIL\VALSARTAN
     Dosage: 100 MG, BID (1 TABLET OF 100 MG TWICE DAILY)
     Route: 048
     Dates: end: 20250220
  3. LEFLUNOMIDE [Concomitant]
     Active Substance: LEFLUNOMIDE
     Indication: Rheumatoid arthritis
     Dosage: 20 MG, QD (1 TAB OF 20 MG ONCE DAILY) (STARTED 25 YEARS AGO)
     Route: 048
  4. ATORVASTATIN CALCIUM [Concomitant]
     Active Substance: ATORVASTATIN CALCIUM
     Indication: Cardiac disorder
     Dosage: 20 MG, QD (1 TAB OF 20 MG ONCE DAILY) (START DATE: AROUND 3 YEARS AGO)
     Route: 048
  5. PLAQUENIL [Concomitant]
     Active Substance: HYDROXYCHLOROQUINE SULFATE
     Indication: Rheumatoid arthritis
     Route: 048
  6. ELIQUIS [Concomitant]
     Active Substance: APIXABAN
     Indication: Antiplatelet therapy
     Dosage: 2.5 MG, BID (1 TAB OF 2.5 MG TWICE DAILY) (3 YEARS AGO)
     Route: 048

REACTIONS (2)
  - Hypersensitivity [Recovering/Resolving]
  - Dyspnoea [Recovered/Resolved]

NARRATIVE: CASE EVENT DATE: 20250220
